FAERS Safety Report 18219898 (Version 7)
Quarter: 2021Q4

REPORT INFORMATION
  Report Type: Report from Study
  Country: US (occurrence: None)
  Receive Date: 20200902
  Receipt Date: 20211227
  Transmission Date: 20220303
  Serious: Yes (Other)
  Sender: FDA-Public Use
  Company Number: US-ROCHE-2666948

PATIENT
  Age: 79 Year
  Sex: Female

DRUGS (23)
  1. ATEZOLIZUMAB [Suspect]
     Active Substance: ATEZOLIZUMAB
     Indication: Skin cancer
     Dosage: ON 29/JUL/2020, SHE RECEIVED LAST DOSE OF ATEZOLIZUMAB PRIOR TO SERIOUS ADVERSE EVENT.
     Route: 041
     Dates: start: 20200729, end: 20200820
  2. EFINEPTAKIN ALFA [Suspect]
     Active Substance: EFINEPTAKIN ALFA
     Indication: Skin cancer
     Dosage: ON 29/JUL/2020, SHE RECEIVED LAST DOSE OF INTERLEUKINS PRIOR TO SERIOUS ADVERSE EVENT.
     Route: 030
     Dates: start: 20200729, end: 20200820
  3. MONTELUKAST [Concomitant]
     Active Substance: MONTELUKAST SODIUM
     Dates: start: 2010
  4. MAXZIDE [Concomitant]
     Active Substance: HYDROCHLOROTHIAZIDE\TRIAMTERENE
     Dates: start: 2010
  5. VITAMIN C [Concomitant]
     Active Substance: ASCORBIC ACID
     Dates: start: 1990
  6. CALCIUM PANTOTHENATE [Concomitant]
     Active Substance: CALCIUM PANTOTHENATE
  7. FOSAMAX [Concomitant]
     Active Substance: ALENDRONATE SODIUM
     Dates: start: 2010
  8. MAGNESIUM [Concomitant]
     Active Substance: MAGNESIUM
     Dates: start: 20200527
  9. TYLENOL [Concomitant]
     Active Substance: ACETAMINOPHEN
     Dosage: 326-650 MG
     Route: 048
     Dates: start: 2010
  10. CALCIUM [Concomitant]
     Active Substance: CALCIUM
     Dates: start: 1990
  11. CHOLECALCIFEROL [Concomitant]
     Active Substance: CHOLECALCIFEROL
     Dates: start: 20200527
  12. ASCORBIC ACID [Concomitant]
     Active Substance: ASCORBIC ACID
  13. BIOTIN [Concomitant]
     Active Substance: BIOTIN
  14. CYANOCOBALAMIN [Concomitant]
     Active Substance: CYANOCOBALAMIN
  15. FOLIC ACID [Concomitant]
     Active Substance: FOLIC ACID
  16. NICOTINIC ACID [Concomitant]
     Active Substance: NIACIN
  17. PYRIDOXINE HYDROCHLORIDE [Concomitant]
     Active Substance: PYRIDOXINE HYDROCHLORIDE
  18. RIBOFLAVIN [Concomitant]
     Active Substance: RIBOFLAVIN
  19. THIAMINE HYDROCHLORIDE [Concomitant]
     Active Substance: THIAMINE HYDROCHLORIDE
  20. .ALPHA.-TOCOPHEROL ACETATE [Concomitant]
     Active Substance: .ALPHA.-TOCOPHEROL ACETATE
  21. HYDROCHLOROTHIAZIDE [Concomitant]
     Active Substance: HYDROCHLOROTHIAZIDE
  22. TRIAMTERENE [Concomitant]
     Active Substance: TRIAMTERENE
     Indication: Hypertension
     Dates: start: 2010
  23. ALENDRONATE [Concomitant]
     Active Substance: ALENDRONATE SODIUM
     Indication: Osteoporosis
     Dates: start: 2010

REACTIONS (2)
  - Peripheral swelling [Recovered/Resolved]
  - Erythema [Recovered/Resolved]

NARRATIVE: CASE EVENT DATE: 20200817
